FAERS Safety Report 17110242 (Version 1)
Quarter: 2019Q4

REPORT INFORMATION
  Report Type: Spontaneous
  Country: JP (occurrence: JP)
  Receive Date: 20191204
  Receipt Date: 20191204
  Transmission Date: 20200122
  Serious: Yes (Hospitalization, Other)
  Sender: FDA-Public Use
  Company Number: JP-VIIV HEALTHCARE LIMITED-JP2019JPN216355

PATIENT
  Age: 37 Year
  Sex: Male

DRUGS (3)
  1. EPIVIR [Suspect]
     Active Substance: LAMIVUDINE
     Dosage: 300 MG
     Route: 048
  2. VIREAD [Concomitant]
     Active Substance: TENOFOVIR DISOPROXIL FUMARATE
     Dosage: 300 MG
  3. STOCRIN [Concomitant]
     Active Substance: EFAVIRENZ
     Dosage: 600 MG

REACTIONS (5)
  - Abdominal pain [Unknown]
  - Condition aggravated [Recovering/Resolving]
  - Tuberculosis [Recovering/Resolving]
  - Immune reconstitution inflammatory syndrome associated tuberculosis [Unknown]
  - Mass [Recovering/Resolving]
